FAERS Safety Report 21576795 (Version 2)
Quarter: 2024Q2

REPORT INFORMATION
  Report Type: Spontaneous
  Country: CA (occurrence: CA)
  Receive Date: 20221110
  Receipt Date: 20240422
  Transmission Date: 20240716
  Serious: Yes (Hospitalization, Other)
  Sender: FDA-Public Use
  Company Number: None

PATIENT
  Age: 9 Decade
  Sex: Male

DRUGS (2)
  1. METHOTREXATE [Suspect]
     Active Substance: METHOTREXATE
     Indication: Corneal epithelial downgrowth
     Route: 031
  2. BEVACIZUMAB [Concomitant]
     Active Substance: BEVACIZUMAB
     Indication: Corneal epithelial downgrowth

REACTIONS (4)
  - Retinal pigment epitheliopathy [Recovered/Resolved]
  - Corneal disorder [Recovered/Resolved]
  - Eyelid disorder [Recovered/Resolved]
  - Neoplasm malignant [Recovered/Resolved]
